FAERS Safety Report 23430923 (Version 1)
Quarter: 2024Q1

REPORT INFORMATION
  Report Type: Spontaneous
  Country: GB (occurrence: GB)
  Receive Date: 20240123
  Receipt Date: 20240123
  Transmission Date: 20240410
  Serious: Yes (Other)
  Sender: FDA-Public Use
  Company Number: None

PATIENT
  Age: 67 Year
  Weight: 85 kg

DRUGS (12)
  1. ESCITALOPRAM [Suspect]
     Active Substance: ESCITALOPRAM OXALATE
     Indication: Product used for unknown indication
     Route: 065
  2. DAPAGLIFLOZIN [Concomitant]
     Active Substance: DAPAGLIFLOZIN
     Dates: start: 20230309
  3. LUPRON DEPOT [Concomitant]
     Active Substance: LEUPROLIDE ACETATE
     Dates: start: 20231211
  4. SERTRALINE [Concomitant]
     Active Substance: SERTRALINE HYDROCHLORIDE
     Dates: start: 20240117
  5. BISOPROLOL [Concomitant]
     Active Substance: BISOPROLOL\BISOPROLOL FUMARATE
     Dates: start: 20220930
  6. LANSOPRAZOLE [Concomitant]
     Active Substance: LANSOPRAZOLE
     Dates: start: 20220930
  7. MELATONIN [Concomitant]
     Active Substance: MELATONIN
     Dosage: TIME INTERVAL: AS NECESSARY: TAKE ONE TABLET AT NIGHT WHEN REQUIRED, ONE TO ...
     Dates: start: 20240117
  8. BICALUTAMIDE [Concomitant]
     Active Substance: BICALUTAMIDE
     Dates: start: 20220930
  9. SACUBITRIL [Concomitant]
     Active Substance: SACUBITRIL
     Route: 065
     Dates: start: 20220930
  10. ASPIRIN [Concomitant]
     Active Substance: ASPIRIN
     Dosage: DISSOLVED IN A GLASS OF WATER AF...
     Route: 065
     Dates: start: 20230719
  11. ATORVASTATIN [Concomitant]
     Active Substance: ATORVASTATIN
     Route: 065
     Dates: start: 20220930
  12. TAMSULOSIN HYDROCHLORIDE [Concomitant]
     Active Substance: TAMSULOSIN HYDROCHLORIDE
     Route: 065
     Dates: start: 20220930

REACTIONS (1)
  - Arrhythmia [Recovered/Resolved]
